FAERS Safety Report 10242694 (Version 2)
Quarter: 2014Q2

REPORT INFORMATION
  Report Type: Spontaneous
  Country: GB (occurrence: GB)
  Receive Date: 20140617
  Receipt Date: 20140617
  Transmission Date: 20141212
  Serious: Yes (Hospitalization, Disabling, Other)
  Sender: FDA-Public Use
  Company Number: GB-ABBVIE-13P-167-1083255-00

PATIENT
  Age: 42 Year
  Sex: Female
  Weight: 87 kg

DRUGS (1)
  1. HUMIRA [Suspect]
     Indication: PSORIASIS
     Route: 030
     Dates: start: 201302, end: 201304

REACTIONS (17)
  - Demyelinating polyneuropathy [Recovered/Resolved]
  - Guillain-Barre syndrome [Recovering/Resolving]
  - Vision blurred [Recovered/Resolved]
  - Inflammation [Unknown]
  - Intervertebral disc protrusion [Recovered/Resolved]
  - Gait disturbance [Recovered/Resolved]
  - Mobility decreased [Recovered/Resolved]
  - Hypoaesthesia oral [Recovered/Resolved]
  - Dysphagia [Recovered/Resolved]
  - Hypoaesthesia [Recovered/Resolved]
  - Visual impairment [Recovered/Resolved]
  - Gastrointestinal disorder [Recovered/Resolved]
  - Bladder disorder [Recovered/Resolved]
  - Myalgia [Recovered/Resolved]
  - Balance disorder [Recovered/Resolved]
  - Gait disturbance [Recovered/Resolved]
  - Hypoaesthesia [Not Recovered/Not Resolved]
